FAERS Safety Report 5362963-X (Version None)
Quarter: 2007Q2

REPORT INFORMATION
  Report Type: 
  Country: None (occurrence: None)
  Receive Date: 20070615
  Receipt Date: 20070531
  Transmission Date: 20071010
  Serious: Yes (Death)
  Sender: FDA-Public Use
  Company Number: A-CH2007-15995

PATIENT
  Age: 86 Year
  Sex: Male

DRUGS (5)
  1. TRACLEER [Suspect]
     Indication: PULMONARY HYPERTENSION
     Dosage: 125 MG, BID, ORAL, 62.5 MG, BID, ORAL
     Route: 048
     Dates: end: 20070416
  2. TRACLEER [Suspect]
     Indication: PULMONARY HYPERTENSION
     Dosage: 125 MG, BID, ORAL, 62.5 MG, BID, ORAL
     Route: 048
     Dates: start: 20070213
  3. MIRAPEXIN (PRAMIPEXOLE DIHYDROCHLORIDE) [Concomitant]
  4. LYRICA [Concomitant]
  5. KARVEZIDE (IRBESARTAN, HYDROCHLOROTHIAZIDE) [Concomitant]

REACTIONS (1)
  - ACUTE MONOCYTIC LEUKAEMIA [None]
